FAERS Safety Report 10594668 (Version 1)
Quarter: 2014Q4

REPORT INFORMATION
  Report Type: Spontaneous
  Country: US (occurrence: US)
  Receive Date: 20141120
  Receipt Date: 20141120
  Transmission Date: 20150529
  Serious: No
  Sender: FDA-Public Use
  Company Number: US-009507513-1411USA009003

PATIENT
  Age: 35 Year
  Sex: Female

DRUGS (3)
  1. PEGINTRON [Suspect]
     Active Substance: PEGINTERFERON ALFA-2B
     Indication: HEPATITIS C
     Dosage: INJ 120, 120 MCG/ONCE WEEKLY
     Route: 058
     Dates: start: 20141103
  2. SOVALDI [Suspect]
     Active Substance: SOFOSBUVIR
  3. RIBASPHERE [Suspect]
     Active Substance: RIBAVIRIN

REACTIONS (1)
  - Chest pain [Unknown]

NARRATIVE: CASE EVENT DATE: 20141114
